FAERS Safety Report 4454812-9 (Version None)
Quarter: 2004Q3

REPORT INFORMATION
  Report Type: 
  Country: None (occurrence: None)
  Receive Date: 20040921
  Receipt Date: 20040915
  Transmission Date: 20050211
  Serious: Yes (Other)
  Sender: FDA-Public Use
  Company Number: PHNR2004AU01433

PATIENT
  Sex: Female

DRUGS (1)
  1. SYNTOCINON [Suspect]
     Indication: ASSISTED DELIVERY
     Route: 042
     Dates: start: 20040914

REACTIONS (4)
  - DRUG EXPOSURE DURING PREGNANCY [None]
  - PHARMACEUTICAL PRODUCT COMPLAINT [None]
  - POSTPARTUM HAEMORRHAGE [None]
  - VACUUM EXTRACTOR DELIVERY [None]
